FAERS Safety Report 21572200 (Version 1)
Quarter: 2022Q4

REPORT INFORMATION
  Report Type: Spontaneous
  Country: FR (occurrence: FR)
  Receive Date: 20221109
  Receipt Date: 20221109
  Transmission Date: 20230112
  Serious: Yes (Death, Life-Threatening)
  Sender: FDA-Public Use
  Company Number: None

PATIENT
  Age: 91 Year

DRUGS (1)
  1. UMULINE [Suspect]
     Active Substance: INSULIN HUMAN
     Indication: Hyperkalaemia
     Dosage: 200 INTERNATIONAL UNIT, UNKNOWN
     Route: 042
     Dates: start: 20220203, end: 20220203

REACTIONS (2)
  - Product prescribing error [Fatal]
  - Hypoglycaemia [Fatal]

NARRATIVE: CASE EVENT DATE: 20220203
